FAERS Safety Report 16933185 (Version 1)
Quarter: 2019Q4

REPORT INFORMATION
  Report Type: Spontaneous
  Country: US (occurrence: US)
  Receive Date: 20191018
  Receipt Date: 20191018
  Transmission Date: 20200122
  Serious: No
  Sender: FDA-Public Use
  Company Number: US-SUNOVION-2019SUN004386

PATIENT
  Age: 75 Year
  Sex: Female

DRUGS (1)
  1. LONHALA MAGNAIR [Suspect]
     Active Substance: GLYCOPYRROLATE
     Indication: CHRONIC OBSTRUCTIVE PULMONARY DISEASE
     Dosage: 25 MCG/ 1 ML, BID ( 25 MCG/1 ML 60/ 30)
     Route: 055

REACTIONS (5)
  - Dyspnoea [Unknown]
  - Malaise [Unknown]
  - Limb injury [Unknown]
  - Fall [Unknown]
  - Limb operation [Unknown]
